FAERS Safety Report 9357973 (Version 3)
Quarter: 2013Q3

REPORT INFORMATION
  Report Type: Spontaneous
  Country: US (occurrence: US)
  Receive Date: 20130620
  Receipt Date: 20130716
  Transmission Date: 20140515
  Serious: No
  Sender: FDA-Public Use
  Company Number: US-PFIZER INC-2013179515

PATIENT
  Age: 73 Year
  Sex: Female
  Weight: 58.96 kg

DRUGS (6)
  1. EPIPEN [Suspect]
     Dosage: 1:1000, 0.3 ML, 1 TIME
     Dates: start: 20130611, end: 20130611
  2. ACTONEL [Concomitant]
     Dosage: 150 MG, MONTHLY
     Route: 048
  3. METFORMIN [Concomitant]
     Dosage: 500 MG, 2TABS BID
     Route: 048
  4. LISINOPRIL W/HYDROCHLOROTHIAZIDE [Concomitant]
     Dosage: 20/12.5 MG
     Route: 048
  5. SIMVASTATIN [Concomitant]
     Dosage: 40 MG DAILY
     Route: 048
  6. FINASTERIDE [Concomitant]
     Dosage: 5 MG DAILY
     Route: 048

REACTIONS (3)
  - Accidental exposure to product [Recovered/Resolved]
  - Injection site coldness [Recovered/Resolved]
  - Injection site pain [Recovered/Resolved]
